FAERS Safety Report 6559958-7 (Version None)
Quarter: 2010Q1

REPORT INFORMATION
  Report Type: 
  Country: None (occurrence: None)
  Receive Date: 20100129
  Receipt Date: 20090917
  Transmission Date: 20100710
  Serious: No
  Sender: FDA-Public Use
  Company Number: US-ABBOTT-09P-163-0597712-00

PATIENT
  Sex: Female
  Weight: 82.628 kg

DRUGS (13)
  1. HUMIRA [Suspect]
     Indication: RHEUMATOID ARTHRITIS
     Dates: start: 20090917
  2. LEFLUNOMIDE [Concomitant]
     Indication: DRUG USE FOR UNKNOWN INDICATION
     Dosage: DAILY
     Route: 048
  3. FOLIC ACID [Concomitant]
     Indication: DRUG USE FOR UNKNOWN INDICATION
     Dosage: DAILY- IS SUPPOSED TO BE TAKING BID HOWEVER ALMOST OUT AND SUPPOSED TO BE TAKING BID
     Route: 048
  4. HYDROXYCHLOR [Concomitant]
     Indication: DRUG USE FOR UNKNOWN INDICATION
     Route: 048
  5. AVALIDE [Concomitant]
     Indication: DRUG USE FOR UNKNOWN INDICATION
     Dosage: 300/25MG ONE DAILY
     Route: 048
  6. OMEPRAZOLE [Concomitant]
     Indication: DRUG USE FOR UNKNOWN INDICATION
     Route: 048
  7. CLONAZEPAM [Concomitant]
     Indication: DRUG USE FOR UNKNOWN INDICATION
     Route: 048
  8. TRAMADOL HCL [Concomitant]
     Indication: DRUG USE FOR UNKNOWN INDICATION
     Route: 048
  9. ASPIRIN [Concomitant]
     Indication: DRUG USE FOR UNKNOWN INDICATION
     Route: 048
  10. CALCIUM [Concomitant]
     Indication: DRUG USE FOR UNKNOWN INDICATION
     Dosage: SUPPLEMENT
  11. MULTI-VITAMIN [Concomitant]
     Indication: DRUG USE FOR UNKNOWN INDICATION
  12. VITAMIN C [Concomitant]
     Indication: DRUG USE FOR UNKNOWN INDICATION
  13. VITAMIN B COMPLEX CAP [Concomitant]
     Indication: DRUG USE FOR UNKNOWN INDICATION

REACTIONS (6)
  - ARTHRALGIA [None]
  - CHEST PAIN [None]
  - INCORRECT DOSE ADMINISTERED [None]
  - INJECTION SITE EXTRAVASATION [None]
  - PARAESTHESIA ORAL [None]
  - THROAT IRRITATION [None]
